FAERS Safety Report 18627794 (Version 3)
Quarter: 2022Q2

REPORT INFORMATION
  Report Type: Spontaneous
  Country: CZ (occurrence: None)
  Receive Date: 20201217
  Receipt Date: 20220608
  Transmission Date: 20220721
  Serious: Yes (Congenital Anomaly, Other)
  Sender: FDA-Public Use
  Company Number: 2020SF66034

PATIENT
  Sex: Male
  Weight: 3.1 kg

DRUGS (1)
  1. SYMBICORT [Suspect]
     Active Substance: BUDESONIDE\FORMOTEROL FUMARATE DIHYDRATE
     Route: 064

REACTIONS (4)
  - Foetal exposure during pregnancy [Unknown]
  - Cleft palate [Unknown]
  - Deafness [Not Recovered/Not Resolved]
  - Cleft lip [Unknown]
